FAERS Safety Report 10385592 (Version 3)
Quarter: 2014Q4

REPORT INFORMATION
  Report Type: Spontaneous
  Country: JP (occurrence: JP)
  Receive Date: 20140814
  Receipt Date: 20141008
  Transmission Date: 20150528
  Serious: Yes (Hospitalization)
  Sender: FDA-Public Use
  Company Number: JP-ROCHE-1449358

PATIENT
  Age: 93 Year
  Sex: Male

DRUGS (22)
  1. PLAVIX [Concomitant]
     Active Substance: CLOPIDOGREL BISULFATE
     Route: 065
     Dates: start: 20140821
  2. MAGMITT [Concomitant]
     Active Substance: MAGNESIUM OXIDE
     Route: 065
     Dates: start: 20140717
  3. FLAVITAN [Concomitant]
     Active Substance: FLAVIN ADENINE DINUCLEOTIDE
     Route: 065
     Dates: start: 20140717
  4. GANATON [Concomitant]
     Active Substance: ITOPRIDE
     Route: 065
     Dates: start: 20140821
  5. ALLELOCK [Concomitant]
     Active Substance: OLOPATADINE HYDROCHLORIDE
     Route: 065
     Dates: start: 20140717
  6. RANIBIZUMAB [Suspect]
     Active Substance: RANIBIZUMAB
     Indication: MACULAR OEDEMA
     Route: 050
     Dates: start: 20140730
  7. GASMOTIN [Concomitant]
     Active Substance: MOSAPRIDE CITRATE
     Route: 065
     Dates: start: 20140717
  8. AVOLVE [Concomitant]
     Active Substance: DUTASTERIDE
     Route: 065
     Dates: start: 20140821
  9. RANIBIZUMAB [Suspect]
     Active Substance: RANIBIZUMAB
     Route: 050
     Dates: start: 20140728
  10. MAGMITT [Concomitant]
     Active Substance: MAGNESIUM OXIDE
     Route: 065
     Dates: start: 20140821
  11. ALEVIATIN [Concomitant]
     Active Substance: PHENYTOIN SODIUM
     Route: 065
     Dates: start: 20140821
  12. CO-DIOVANE [Concomitant]
     Route: 065
     Dates: start: 20140717
  13. LANSOPRAZOLE. [Concomitant]
     Active Substance: LANSOPRAZOLE
     Route: 065
     Dates: start: 20140717
  14. NIPOLAZIN [Concomitant]
     Route: 065
     Dates: start: 20140717
  15. TRANSAMIN [Concomitant]
     Active Substance: TRANEXAMIC ACID
     Route: 065
     Dates: start: 20140717
  16. MICARDIS [Concomitant]
     Active Substance: TELMISARTAN
     Route: 065
     Dates: start: 20140821
  17. AVOLVE [Concomitant]
     Active Substance: DUTASTERIDE
     Route: 065
     Dates: start: 20140717
  18. ALLELOCK [Concomitant]
     Active Substance: OLOPATADINE HYDROCHLORIDE
     Route: 065
     Dates: start: 20140821
  19. PARIET [Concomitant]
     Active Substance: RABEPRAZOLE SODIUM
     Route: 065
     Dates: start: 20140821
  20. AMBROXOL HYDROCHLORIDE [Concomitant]
     Active Substance: AMBROXOL HYDROCHLORIDE
  21. PROMAC (JAPAN) [Concomitant]
     Route: 065
     Dates: start: 20140717
  22. NAUZELIN [Concomitant]
     Active Substance: DOMPERIDONE
     Route: 065
     Dates: start: 20140821

REACTIONS (6)
  - Dizziness [Unknown]
  - Malaise [Unknown]
  - Blood pressure increased [Not Recovered/Not Resolved]
  - Tremor [Unknown]
  - Vomiting [Unknown]
  - Cerebral infarction [Recovering/Resolving]

NARRATIVE: CASE EVENT DATE: 20140731
